FAERS Safety Report 6179442-2 (Version None)
Quarter: 2009Q2

REPORT INFORMATION
  Report Type: 
  Country: None (occurrence: None)
  Receive Date: 20090505
  Receipt Date: 20090427
  Transmission Date: 20091009
  Serious: Yes (Hospitalization, Other)
  Sender: FDA-Public Use
  Company Number: B0572765A

PATIENT
  Sex: Female

DRUGS (1)
  1. PROPAFENONE HCL [Suspect]
     Indication: DRUG USE FOR UNKNOWN INDICATION
     Dosage: 300MG TWICE PER DAY
     Route: 048
     Dates: start: 20090211

REACTIONS (2)
  - CARDIAC FIBRILLATION [None]
  - ISCHAEMIC STROKE [None]
